FAERS Safety Report 8914092 (Version 1)
Quarter: 2012Q4

REPORT INFORMATION
  Report Type: 
  Country: US (occurrence: US)
  Receive Date: 20121119
  Receipt Date: 20121119
  Transmission Date: 20130627
  Serious: Yes (Death)
  Sender: FDA-Public Use
  Company Number: US-BRISTOL-MYERS SQUIBB COMPANY-17114661

PATIENT

DRUGS (1)
  1. YERVOY [Suspect]
     Dosage: 1df: 200mg / 40mL (5mg/mL)

REACTIONS (1)
  - Death [Fatal]
